FAERS Safety Report 20185010 (Version 1)
Quarter: 2021Q4

REPORT INFORMATION
  Report Type: Spontaneous
  Country: US (occurrence: US)
  Receive Date: 20211215
  Receipt Date: 20211215
  Transmission Date: 20220303
  Serious: No
  Sender: FDA-Public Use
  Company Number: US-STRONGBRIDGE BIOPHARMA-2021-STR-000403

PATIENT
  Age: 44 Year
  Sex: Male

DRUGS (1)
  1. KEVEYIS [Suspect]
     Active Substance: DICHLORPHENAMIDE
     Indication: Familial periodic paralysis
     Dosage: 50 MG, QD
     Route: 048
     Dates: start: 20211201

REACTIONS (5)
  - Dyspnoea [Recovering/Resolving]
  - Swollen tongue [Recovering/Resolving]
  - Lip swelling [Recovering/Resolving]
  - Drug hypersensitivity [Recovering/Resolving]
  - Contraindicated product administered [Unknown]

NARRATIVE: CASE EVENT DATE: 20211201
